FAERS Safety Report 9516149 (Version 1)
Quarter: 2013Q3

REPORT INFORMATION
  Report Type: Spontaneous
  Country: US (occurrence: US)
  Receive Date: 20130911
  Receipt Date: 20130911
  Transmission Date: 20140515
  Serious: No
  Sender: FDA-Public Use
  Company Number: -SAAVPROD-BMS17055211

PATIENT
  Sex: Female

DRUGS (2)
  1. AVALIDE [Suspect]
  2. IRBESARTAN [Suspect]

REACTIONS (4)
  - Abdominal discomfort [Unknown]
  - Dizziness [Unknown]
  - Malaise [Unknown]
  - Nausea [Unknown]
